FAERS Safety Report 4301315-8 (Version None)
Quarter: 2004Q1

REPORT INFORMATION
  Report Type: 
  Country: None (occurrence: None)
  Receive Date: 20040223
  Receipt Date: 20030110
  Transmission Date: 20041129
  Serious: No
  Sender: FDA-Public Use
  Company Number: US-GLAXOSMITHKLINE-A0391869A

PATIENT
  Sex: Male

DRUGS (2)
  1. NAVELBINE [Suspect]
     Indication: NON-SMALL CELL LUNG CANCER
     Dosage: 50MGM2 UNKNOWN
     Route: 042
     Dates: end: 20030103
  2. NO CONCURRENT MEDICATIONS [Concomitant]

REACTIONS (1)
  - VEIN PAIN [None]
